FAERS Safety Report 9171214 (Version 2)
Quarter: 2013Q2

REPORT INFORMATION
  Report Type: Spontaneous
  Country: US (occurrence: None)
  Receive Date: 20130312
  Receipt Date: 20130405
  Transmission Date: 20140414
  Serious: Yes (Other)
  Sender: FDA-Public Use
  Company Number: US-1196985

PATIENT
  Age: 71 Year
  Sex: Female
  Weight: 67.13 kg

DRUGS (1)
  1. PATANASE [Suspect]
     Indication: MULTIPLE ALLERGIES
     Dosage: 1 SPRAY EACH NOSTRIL QD NASAL
     Dates: start: 20130201, end: 20130206

REACTIONS (6)
  - Suicidal ideation [None]
  - Depression [None]
  - Mood altered [None]
  - Agitation [None]
  - Somnolence [None]
  - Irritability [None]
